FAERS Safety Report 8742623 (Version 2)
Quarter: 2012Q4

REPORT INFORMATION
  Report Type: Report from Study
  Country: TW (occurrence: TW)
  Receive Date: 20120824
  Receipt Date: 20120904
  Transmission Date: 20130627
  Serious: Yes (Death, Hospitalization)
  Sender: FDA-Public Use
  Company Number: TW-JNJFOC-20120807695

PATIENT
  Age: 85 Year
  Sex: Male
  Weight: 67 kg

DRUGS (9)
  1. ABIRATERONE ACETATE [Suspect]
     Indication: PROSTATE CANCER METASTATIC
     Route: 048
     Dates: start: 20120323, end: 20120803
  2. ABIRATERONE ACETATE [Suspect]
     Indication: PROSTATE CANCER METASTATIC
     Route: 048
     Dates: start: 20120207
  3. PREDNISOLONE [Suspect]
     Indication: PROSTATE CANCER METASTATIC
     Route: 048
     Dates: start: 20120323
  4. PREDNISOLONE [Suspect]
     Indication: PROSTATE CANCER METASTATIC
     Route: 048
     Dates: start: 20120510, end: 20120514
  5. PREDNISOLONE [Suspect]
     Indication: PROSTATE CANCER METASTATIC
     Route: 048
     Dates: end: 20120803
  6. PREDNISOLONE [Suspect]
     Indication: PROSTATE CANCER METASTATIC
     Route: 048
     Dates: start: 20120508, end: 20120510
  7. OPIOIDS [Concomitant]
     Indication: PAIN
     Route: 065
  8. LEUPLIN [Concomitant]
     Indication: HORMONE THERAPY
     Route: 065
     Dates: start: 200904
  9. TAXOTERE [Concomitant]
     Indication: CHEMOTHERAPY
     Route: 065
     Dates: start: 20120810

REACTIONS (1)
  - Prostate cancer [Fatal]
